FAERS Safety Report 6839730-0 (Version None)
Quarter: 2010Q3

REPORT INFORMATION
  Report Type: 
  Country: None (occurrence: None)
  Receive Date: 20100714
  Receipt Date: 20100706
  Transmission Date: 20110219
  Serious: Yes (Hospitalization)
  Sender: FDA-Public Use
  Company Number: US-ASTRAZENECA-2010SE20694

PATIENT
  Age: 23374 Day
  Sex: Female
  Weight: 113.4 kg

DRUGS (2)
  1. CRESTOR [Suspect]
     Route: 048
  2. LIPITOR [Suspect]

REACTIONS (3)
  - CEREBROVASCULAR ACCIDENT [None]
  - MUSCLE DISORDER [None]
  - MYALGIA [None]
